FAERS Safety Report 8133507-4 (Version None)
Quarter: 2012Q1

REPORT INFORMATION
  Report Type: 
  Country: None (occurrence: None)
  Receive Date: 20120213
  Receipt Date: 20120209
  Transmission Date: 20120608
  Serious: Yes (Hospitalization, Other)
  Sender: FDA-Public Use
  Company Number: GB-GILEAD-2011-0048323

PATIENT
  Sex: Male

DRUGS (5)
  1. LYRICA [Concomitant]
     Indication: PRODUCT USED FOR UNKNOWN INDICATION
     Dosage: 75MG PER DAY
     Route: 048
     Dates: start: 20100101
  2. LAMIVUDINE [Concomitant]
     Indication: HEPATITIS B
     Dosage: 10MG PER DAY
     Route: 048
     Dates: start: 20040826
  3. URSO                               /00465701/ [Concomitant]
     Indication: PRODUCT USED FOR UNKNOWN INDICATION
     Dosage: 300MG PER DAY
     Route: 048
     Dates: start: 20040607
  4. ALFAROL [Concomitant]
     Indication: PRODUCT USED FOR UNKNOWN INDICATION
     Dosage: 1MCG PER DAY
     Route: 048
     Dates: start: 20110809
  5. HEPSERA [Suspect]
     Indication: HEPATITIS B
     Dosage: 100MG PER DAY
     Route: 048
     Dates: start: 20050425

REACTIONS (16)
  - BLOOD ALKALINE PHOSPHATASE INCREASED [None]
  - RENAL IMPAIRMENT [None]
  - RENAL TUBULAR ACIDOSIS [None]
  - FANCONI SYNDROME [None]
  - BODY HEIGHT DECREASED [None]
  - ARTHRALGIA [None]
  - PAIN IN EXTREMITY [None]
  - WEIGHT DECREASED [None]
  - SPINAL DEFORMITY [None]
  - BLOOD CALCIUM INCREASED [None]
  - BLOOD CHLORIDE INCREASED [None]
  - BLOOD CREATININE INCREASED [None]
  - GAIT DISTURBANCE [None]
  - DEFORMITY THORAX [None]
  - OSTEOMALACIA [None]
  - BLOOD PHOSPHORUS DECREASED [None]
